APPROVED DRUG PRODUCT: CONCENTRAID
Active Ingredient: DESMOPRESSIN ACETATE
Strength: 0.01%
Dosage Form/Route: SOLUTION;NASAL
Application: N019776 | Product #001
Applicant: FERRING PHARMACEUTICALS INC
Approved: Dec 26, 1990 | RLD: No | RS: No | Type: DISCN